FAERS Safety Report 11251879 (Version 1)
Quarter: 2015Q3

REPORT INFORMATION
  Report Type: Spontaneous
  Country: US (occurrence: US)
  Receive Date: 20150708
  Receipt Date: 20150708
  Transmission Date: 20151125
  Serious: No
  Sender: FDA-Public Use
  Company Number: US-ELI_LILLY_AND_COMPANY-US201207002213

PATIENT
  Age: 82 Year
  Sex: Male

DRUGS (1)
  1. ALIMTA [Suspect]
     Active Substance: PEMETREXED DISODIUM
     Indication: NON-SMALL CELL LUNG CANCER
     Dosage: 500 MG, UNK
     Route: 042
     Dates: start: 201206

REACTIONS (5)
  - Photosensitivity reaction [Unknown]
  - Eye pain [Unknown]
  - Dry eye [Unknown]
  - Asthenopia [Unknown]
  - Paracentesis [Unknown]

NARRATIVE: CASE EVENT DATE: 20120705
